FAERS Safety Report 22088188 (Version 1)
Quarter: 2023Q1

REPORT INFORMATION
  Report Type: Spontaneous
  Country: FR (occurrence: FR)
  Receive Date: 20230313
  Receipt Date: 20230313
  Transmission Date: 20230418
  Serious: Yes (Hospitalization, Other)
  Sender: FDA-Public Use
  Company Number: FR-AFSSAPS-GR2023000229

PATIENT
  Age: 82 Year
  Sex: Female
  Weight: 69.5 kg

DRUGS (2)
  1. LEVOFLOXACIN [Suspect]
     Active Substance: LEVOFLOXACIN
     Indication: Device related infection
     Dosage: 2 DOSAGE FORM (1CP 2X/J)
     Route: 048
     Dates: start: 20221224
  2. RIFAMPIN [Suspect]
     Active Substance: RIFAMPIN
     Indication: Device related infection
     Dosage: 4 DOSAGE FORM ( 2CP 2X/J)
     Route: 048
     Dates: start: 20221226, end: 20230113

REACTIONS (2)
  - Thrombocytopenia [Recovering/Resolving]
  - Condition aggravated [Recovering/Resolving]

NARRATIVE: CASE EVENT DATE: 20230101
